FAERS Safety Report 8822508 (Version 1)
Quarter: 2012Q4

REPORT INFORMATION
  Report Type: 
  Country: US (occurrence: US)
  Receive Date: 20121003
  Receipt Date: 20121003
  Transmission Date: 20130627
  Serious: Yes (Other)
  Sender: FDA-Public Use
  Company Number: US-ELI_LILLY_AND_COMPANY-US201209006522

PATIENT
  Sex: Male

DRUGS (16)
  1. CYMBALTA [Suspect]
     Indication: MUSCLE SPASMS
     Dosage: 30 mg, qd
     Dates: start: 201208, end: 201208
  2. ZETIA [Concomitant]
  3. GABAPENTIN [Concomitant]
  4. PLAVIX [Concomitant]
  5. PANTOPRAZOLE [Concomitant]
  6. TRICOR [Concomitant]
  7. CARVEDILOL [Concomitant]
  8. LANTUS [Concomitant]
  9. VITAMIN D [Concomitant]
  10. OCUVITE [Concomitant]
  11. ASPIRIN [Concomitant]
     Dosage: 81 mg, UNK
  12. RAMIPRIL [Concomitant]
  13. ACIDOPHILUS [Concomitant]
  14. CRESTOR [Concomitant]
  15. NOVOLOG [Concomitant]
  16. RAPAFLO [Concomitant]

REACTIONS (5)
  - Loss of consciousness [Unknown]
  - Fall [Unknown]
  - Heart rate irregular [Unknown]
  - Blood glucose increased [Unknown]
  - Off label use [Recovered/Resolved]
